FAERS Safety Report 4648041-3 (Version None)
Quarter: 2005Q2

REPORT INFORMATION
  Report Type: 
  Country: None (occurrence: None)
  Receive Date: 20050331
  Receipt Date: 20041228
  Transmission Date: 20051028
  Serious: No
  Sender: FDA-Public Use
  Company Number: 04P-163-0284860-00

PATIENT
  Age: 70 Year
  Sex: Female
  Weight: 48.9885 kg

DRUGS (9)
  1. HUMIRA [Suspect]
     Indication: RHEUMATOID ARTHRITIS
     Dosage: 40 MG, 1 IN 2 WK, SUBCUTANEOUS; 40 MG, 1 IN 1 WK, SUBCUTANEOUS
     Route: 058
     Dates: start: 20040301, end: 20041001
  2. HUMIRA [Suspect]
     Indication: RHEUMATOID ARTHRITIS
     Dosage: 40 MG, 1 IN 2 WK, SUBCUTANEOUS; 40 MG, 1 IN 1 WK, SUBCUTANEOUS
     Route: 058
     Dates: start: 20041001, end: 20041201
  3. ETIDRONATE DISODIUM [Concomitant]
  4. LEFLUNOMIDE [Concomitant]
  5. RALOXIFENE HCL [Concomitant]
  6. LEVOTHYROXINE SODIUM [Concomitant]
  7. METHOTREXATE [Concomitant]
  8. PREDNISONE TAB [Concomitant]
  9. FOLINIC ACID [Concomitant]

REACTIONS (2)
  - BLISTER [None]
  - DRUG INEFFECTIVE [None]
